FAERS Safety Report 17081110 (Version 1)
Quarter: 2019Q4

REPORT INFORMATION
  Report Type: Spontaneous
  Country: CN (occurrence: CN)
  Receive Date: 20191127
  Receipt Date: 20191127
  Transmission Date: 20200122
  Serious: Yes (Hospitalization)
  Sender: FDA-Public Use
  Company Number: CN-ELI_LILLY_AND_COMPANY-CN201911009567

PATIENT
  Age: 62 Year
  Sex: Male
  Weight: 70 kg

DRUGS (2)
  1. EPERISONE HYDROCHLORIDE [Concomitant]
     Active Substance: EPERISONE HYDROCHLORIDE
     Indication: TENSION HEADACHE
     Dosage: 1 DOSAGE FORM, TID
     Route: 048
     Dates: start: 20191010, end: 20191013
  2. DULOXETINE HYDROCHLORIDE. [Suspect]
     Active Substance: DULOXETINE HYDROCHLORIDE
     Indication: TENSION HEADACHE
     Dosage: 1 DOSAGE FORM, UNKNOWN
     Route: 048
     Dates: start: 20191010, end: 20191013

REACTIONS (6)
  - Altered state of consciousness [Recovering/Resolving]
  - Hyperhidrosis [Recovering/Resolving]
  - Fatigue [Recovering/Resolving]
  - Asthenia [Recovering/Resolving]
  - Peripheral coldness [Recovering/Resolving]
  - Off label use [Unknown]

NARRATIVE: CASE EVENT DATE: 20191013
